FAERS Safety Report 7876995-0 (Version None)
Quarter: 2011Q4

REPORT INFORMATION
  Report Type: 
  Country: None (occurrence: None)
  Receive Date: 20111031
  Receipt Date: 20111024
  Transmission Date: 20120403
  Serious: Yes (Other)
  Sender: FDA-Public Use
  Company Number: PHEH2011US07664

PATIENT
  Sex: Female

DRUGS (7)
  1. VIVELLE-DOT [Suspect]
     Dosage: 0.1 MG, QW2
     Route: 062
  2. CYCLOBENZAPRINE HYDROCHLORIDE [Concomitant]
     Dosage: 0.5 DF, HALF TABLET
  3. VIVELLE-DOT [Suspect]
     Dosage: 0.075 MG, QW2
     Route: 062
  4. CYCLOBENZAPRINE HYDROCHLORIDE [Concomitant]
     Indication: ABDOMINAL PAIN UPPER
     Dosage: 0.5 DF, HALF TABLET
  5. VIVELLE-DOT [Suspect]
     Dosage: 0.075 MG, QW2
     Route: 062
  6. FLUOXETINE HCL [Suspect]
     Indication: DEPRESSION
     Dosage: 20 MG, QD
     Route: 048
  7. CYCLOBENZAPRINE HYDROCHLORIDE [Concomitant]
     Indication: BACK PAIN
     Dosage: 800 MG, THE FIRST DOSE WAS A WHOLE TABLET
     Route: 048

REACTIONS (7)
  - BREAST PAIN [None]
  - MIGRAINE [None]
  - HOT FLUSH [None]
  - ASTHENIA [None]
  - ALOPECIA [None]
  - VOCAL CORD CYST [None]
  - DRY MOUTH [None]
